FAERS Safety Report 14145661 (Version 1)
Quarter: 2017Q4

REPORT INFORMATION
  Report Type: Spontaneous
  Country: US (occurrence: US)
  Receive Date: 20171030
  Receipt Date: 20171030
  Transmission Date: 20180321
  Serious: Yes (Other)
  Sender: FDA-Public Use
  Company Number: None

PATIENT
  Age: 62 Year
  Sex: Female
  Weight: 74.3 kg

DRUGS (3)
  1. NEUPOGEN [Concomitant]
     Active Substance: FILGRASTIM
  2. FERAHEME [Suspect]
     Active Substance: FERUMOXYTOL NON-STOICHIOMETRIC MAGNETITE
     Dates: start: 20171026, end: 20171026
  3. PACLITAXEL. [Concomitant]
     Active Substance: PACLITAXEL

REACTIONS (6)
  - Dyspnoea [None]
  - Infusion related reaction [None]
  - Flushing [None]
  - Hyperhidrosis [None]
  - Feeling hot [None]
  - Unresponsive to stimuli [None]

NARRATIVE: CASE EVENT DATE: 20171026
